FAERS Safety Report 12269601 (Version 1)
Quarter: 2016Q2

REPORT INFORMATION
  Report Type: Spontaneous
  Country: SE (occurrence: SE)
  Receive Date: 20160414
  Receipt Date: 20160414
  Transmission Date: 20160815
  Serious: Yes (Other)
  Sender: FDA-Public Use
  Company Number: SE-TEVA-651603ISR

PATIENT
  Age: 24 Year
  Sex: Female

DRUGS (1)
  1. VENLAFAXINE [Suspect]
     Active Substance: VENLAFAXINE HYDROCHLORIDE
     Route: 065

REACTIONS (14)
  - Hypersensitivity [Recovered/Resolved]
  - Anaemia [Recovered/Resolved]
  - Gingival bleeding [Recovered/Resolved]
  - Tooth injury [Recovered/Resolved]
  - Eye inflammation [Recovered/Resolved]
  - Vomiting [Recovered/Resolved]
  - Alopecia [Recovered/Resolved]
  - Infection [Recovered/Resolved]
  - Haematoma [Not Recovered/Not Resolved]
  - Glossitis [Recovered/Resolved]
  - Hyperhidrosis [Recovered/Resolved]
  - Gastrointestinal ulcer [Recovered/Resolved]
  - Gastrointestinal inflammation [Recovered/Resolved]
  - Nausea [Recovered/Resolved]
